FAERS Safety Report 21950363 (Version 1)
Quarter: 2023Q1

REPORT INFORMATION
  Report Type: Spontaneous
  Country: US (occurrence: None)
  Receive Date: 20230203
  Receipt Date: 20230203
  Transmission Date: 20230417
  Serious: Yes (Other)
  Sender: FDA-Public Use
  Company Number: 2023A024144

PATIENT

DRUGS (3)
  1. NEXIUM [Suspect]
     Active Substance: ESOMEPRAZOLE MAGNESIUM
     Route: 048
     Dates: start: 1998, end: 2021
  2. DEXILANT [Suspect]
     Active Substance: DEXLANSOPRAZOLE
     Dates: start: 1998, end: 2021
  3. PREVACID [Suspect]
     Active Substance: LANSOPRAZOLE
     Dates: start: 1998, end: 2021

REACTIONS (1)
  - Chronic kidney disease [Unknown]
